FAERS Safety Report 6185841-5 (Version None)
Quarter: 2009Q2

REPORT INFORMATION
  Report Type: 
  Country: None (occurrence: None)
  Receive Date: 20090511
  Receipt Date: 20090501
  Transmission Date: 20091009
  Serious: Yes (Hospitalization)
  Sender: FDA-Public Use
  Company Number: A0774918A

PATIENT
  Age: 69 Year
  Sex: Female
  Weight: 107.3 kg

DRUGS (5)
  1. AVANDIA [Suspect]
     Dosage: 8MG PER DAY
     Route: 048
     Dates: start: 20030301, end: 20070801
  2. NEXIUM [Concomitant]
  3. UNIRETIC [Concomitant]
  4. METFORMIN HCL [Concomitant]
  5. NORVASC [Concomitant]

REACTIONS (2)
  - MYOCARDIAL INFARCTION [None]
  - MYOCARDIAL ISCHAEMIA [None]
